FAERS Safety Report 9766825 (Version 2)
Quarter: 2014Q2

REPORT INFORMATION
  Report Type: Spontaneous
  Country: US (occurrence: US)
  Receive Date: 20131217
  Receipt Date: 20140522
  Transmission Date: 20141212
  Serious: No
  Sender: FDA-Public Use
  Company Number: US-BIOGENIDEC-2013BI117510

PATIENT
  Age: 51 Year
  Sex: Female

DRUGS (6)
  1. TECFIDERA [Suspect]
     Indication: MULTIPLE SCLEROSIS
     Route: 048
     Dates: start: 20131102, end: 201311
  2. TECFIDERA [Suspect]
     Indication: MULTIPLE SCLEROSIS
     Route: 048
  3. TECFIDERA [Suspect]
     Indication: MULTIPLE SCLEROSIS
     Route: 048
     Dates: start: 20140404
  4. CLONAZEPAM [Concomitant]
  5. VITAMIN D [Concomitant]
  6. FISH OIL BURP-LESS [Concomitant]

REACTIONS (9)
  - Dehydration [Recovered/Resolved]
  - Underdose [Unknown]
  - Influenza [Unknown]
  - Dysuria [Recovered/Resolved]
  - Blood urine present [Recovered/Resolved]
  - Nausea [Unknown]
  - Dyspepsia [Unknown]
  - Flushing [Recovered/Resolved]
  - Diarrhoea [Recovered/Resolved]
